FAERS Safety Report 7094298-1 (Version None)
Quarter: 2010Q4

REPORT INFORMATION
  Report Type: 
  Country: None (occurrence: None)
  Receive Date: 20101110
  Receipt Date: 20101108
  Transmission Date: 20110411
  Serious: Yes (Death)
  Sender: FDA-Public Use
  Company Number: US-B.I. PHARMACEUTICALS,INC./RIDGEFIELD-2010-BP-12473BP

PATIENT
  Sex: Male

DRUGS (4)
  1. COMBIVENT [Suspect]
     Dosage: 18MCG/103MCG
     Route: 055
     Dates: start: 20090101, end: 20100901
  2. MORPHINE [Concomitant]
     Indication: PAIN
     Dosage: ELIX
     Route: 048
     Dates: end: 20100101
  3. OXYCODONE HCL [Concomitant]
     Indication: PAIN
     Dosage: ELIX
     Route: 048
     Dates: end: 20100101
  4. LORAZEPAM [Concomitant]
     Indication: PAIN
     Route: 048
     Dates: end: 20100101

REACTIONS (1)
  - LUNG NEOPLASM MALIGNANT [None]
